FAERS Safety Report 13101840 (Version 1)
Quarter: 2017Q1

REPORT INFORMATION
  Report Type: Spontaneous
  Country: US (occurrence: US)
  Receive Date: 20170110
  Receipt Date: 20170110
  Transmission Date: 20170428
  Serious: No
  Sender: FDA-Public Use
  Company Number: US-PFIZER INC-2017009584

PATIENT
  Age: 55 Year
  Sex: Female

DRUGS (2)
  1. PHENYTOIN SODIUM. [Suspect]
     Active Substance: PHENYTOIN SODIUM
     Indication: SEIZURE
     Dosage: 1 CAPSULE TWICE A DAY
     Route: 048
     Dates: start: 1970
  2. DILANTIN [Suspect]
     Active Substance: PHENYTOIN

REACTIONS (3)
  - Hypertension [Not Recovered/Not Resolved]
  - Mental disorder [Unknown]
  - Drug level fluctuating [Not Recovered/Not Resolved]

NARRATIVE: CASE EVENT DATE: 2008
